FAERS Safety Report 20321743 (Version 1)
Quarter: 2022Q1

REPORT INFORMATION
  Report Type: Spontaneous
  Country: US (occurrence: None)
  Receive Date: 20220111
  Receipt Date: 20220111
  Transmission Date: 20220424
  Serious: Yes (Hospitalization)
  Sender: FDA-Public Use
  Company Number: None

PATIENT
  Age: 63 Year
  Sex: Male
  Weight: 115.8 kg

DRUGS (2)
  1. TAXOTERE [Suspect]
     Active Substance: DOCETAXEL
     Dates: end: 20210910
  2. METOPROLOL [Concomitant]

REACTIONS (24)
  - Glomerular filtration rate decreased [None]
  - Urinary retention [None]
  - Asthenia [None]
  - Fatigue [None]
  - Dizziness [None]
  - Chills [None]
  - Malaise [None]
  - Anuria [None]
  - Back pain [None]
  - Blood pressure decreased [None]
  - Heart rate increased [None]
  - Atrial fibrillation [None]
  - Hydronephrosis [None]
  - Sepsis [None]
  - Dehydration [None]
  - Renal failure [None]
  - Serratia test positive [None]
  - Culture urine positive [None]
  - Pseudomonas test positive [None]
  - Leukopenia [None]
  - Cardiac failure congestive [None]
  - Hypervolaemia [None]
  - Cellulitis [None]
  - Drug intolerance [None]

NARRATIVE: CASE EVENT DATE: 20210114
